FAERS Safety Report 11206365 (Version 1)
Quarter: 2015Q2

REPORT INFORMATION
  Report Type: Spontaneous
  Country: US (occurrence: US)
  Receive Date: 20150622
  Receipt Date: 20150622
  Transmission Date: 20150821
  Serious: No
  Sender: FDA-Public Use
  Company Number: US-ASTRAZENECA-2015SE56893

PATIENT
  Sex: Male
  Weight: 83.9 kg

DRUGS (6)
  1. SYMBICORT [Suspect]
     Active Substance: BUDESONIDE\FORMOTEROL FUMARATE DIHYDRATE
     Indication: CHRONIC OBSTRUCTIVE PULMONARY DISEASE
     Dosage: 160/4.5, 2 PUFFS, TWO TIMES A DAY
     Route: 055
     Dates: start: 201505
  2. AVADART [Concomitant]
     Indication: BENIGN PROSTATIC HYPERPLASIA
     Dosage: AT NIGHT
     Route: 048
     Dates: start: 2010
  3. BUDESONIDE. [Suspect]
     Active Substance: BUDESONIDE
     Indication: CHRONIC OBSTRUCTIVE PULMONARY DISEASE
     Route: 055
  4. ZETA [Concomitant]
     Active Substance: FUSIDIC ACID
     Indication: BLOOD CHOLESTEROL
     Route: 048
     Dates: start: 2014
  5. SYMBICORT [Suspect]
     Active Substance: BUDESONIDE\FORMOTEROL FUMARATE DIHYDRATE
     Indication: BRONCHITIS CHRONIC
     Dosage: 160/4.5, 2 PUFFS, TWO TIMES A DAY
     Route: 055
     Dates: start: 201505
  6. BUDESONIDE. [Suspect]
     Active Substance: BUDESONIDE
     Indication: BRONCHITIS CHRONIC
     Route: 055

REACTIONS (5)
  - Product use issue [Unknown]
  - Aphonia [Unknown]
  - Intentional product misuse [Unknown]
  - Rhinorrhoea [Unknown]
  - Dysphonia [Unknown]
